FAERS Safety Report 7667894-8 (Version None)
Quarter: 2011Q3

REPORT INFORMATION
  Report Type: 
  Country: None (occurrence: None)
  Receive Date: 20110807
  Receipt Date: 20110726
  Transmission Date: 20111222
  Serious: Yes (Other)
  Sender: FDA-Public Use
  Company Number: US-AMGEN-USASP2011033572

PATIENT

DRUGS (2)
  1. ENBREL [Suspect]
     Dosage: 50 MG, QWK
     Route: 064
     Dates: start: 20060601, end: 20110526
  2. ENBREL [Suspect]
     Dosage: 50 MG, QWK
     Route: 064
     Dates: start: 20060601, end: 20110526

REACTIONS (3)
  - FOETAL HEART RATE ABNORMAL [None]
  - FOETAL CHROMOSOME ABNORMALITY [None]
  - FOETAL GROWTH RESTRICTION [None]
